FAERS Safety Report 17117365 (Version 1)
Quarter: 2019Q4

REPORT INFORMATION
  Report Type: Spontaneous
  Country: FR (occurrence: FR)
  Receive Date: 20191205
  Receipt Date: 20191205
  Transmission Date: 20200122
  Serious: Yes (Life-Threatening)
  Sender: FDA-Public Use
  Company Number: FR-MYLANLABS-2019M1119410

PATIENT
  Age: 18 Year
  Sex: Female

DRUGS (5)
  1. OPTIMIZETTE [Concomitant]
     Active Substance: DESOGESTREL
     Indication: CONTRACEPTION
     Dosage: 1 DOSAGE FORM, QD
     Route: 048
  2. KETOPROFEN. [Suspect]
     Active Substance: KETOPROFEN
     Indication: RENAL COLIC
     Dosage: 100 MILLIGRAM, TOTAL
     Route: 048
     Dates: start: 20190421, end: 20190421
  3. PARACETAMOL [Concomitant]
     Active Substance: ACETAMINOPHEN
     Indication: PAIN
     Dosage: INCONNUE
     Route: 048
     Dates: start: 20190421
  4. SPASFON                            /00765801/ [Concomitant]
     Active Substance: PHLOROGLUCINOL\1,3,5-TRIMETHOXYBENZENE
     Indication: PAIN
     Dosage: INCONNUE
     Route: 048
     Dates: start: 20190421, end: 20190421
  5. MORPHINE [Concomitant]
     Active Substance: MORPHINE
     Indication: PAIN
     Dosage: INCONNUE
     Route: 048
     Dates: start: 20190421, end: 20190421

REACTIONS (1)
  - Septic shock [Recovered/Resolved with Sequelae]

NARRATIVE: CASE EVENT DATE: 20190422
